FAERS Safety Report 10957715 (Version 3)
Quarter: 2015Q2

REPORT INFORMATION
  Report Type: Spontaneous
  Country: US (occurrence: US)
  Receive Date: 20150326
  Receipt Date: 20150501
  Transmission Date: 20150821
  Serious: Yes (Hospitalization, Other)
  Sender: FDA-Public Use
  Company Number: US-PFIZER INC-2015100818

PATIENT
  Age: 70 Year
  Sex: Female
  Weight: 59 kg

DRUGS (12)
  1. LEVOTHYROXINE [Concomitant]
     Active Substance: LEVOTHYROXINE
     Dosage: 75 ?G, ALTERNATE DAY
  2. MULTIVITAMINS [Concomitant]
     Active Substance: VITAMINS
     Dosage: UNK, 1X/DAY
  3. MULTIVITAMINS [Concomitant]
     Active Substance: VITAMINS
     Dosage: 1 DF, 1X/DAY
  4. GLUCOSAMINE + MSM [Concomitant]
     Active Substance: DIMETHYL SULFONE\GLUCOSAMINE SULFATE
     Dosage: 1 DF, 1X/DAY (1500 MG + MSM 1500 MG)
  5. BABY ASPIRIN [Concomitant]
     Active Substance: ASPIRIN
     Indication: HYPERTENSION
     Dosage: 81 MG, 1X/DAY
  6. ATORVASTATIN CALCIUM. [Suspect]
     Active Substance: ATORVASTATIN CALCIUM
     Indication: BLOOD CHOLESTEROL INCREASED
     Dosage: 10 MG, DAILY
     Dates: end: 20150208
  7. LEVOTHYROXINE [Concomitant]
     Active Substance: LEVOTHYROXINE
     Indication: THYROID NODULE REMOVAL
     Dosage: 50 ?G, ALTERNATE DAY
  8. COENZYME Q10 [Concomitant]
     Active Substance: UBIDECARENONE
     Indication: HYPERTENSION
     Dosage: 100 MG, 1X/DAY
     Dates: end: 20150220
  9. LISINOPRIL AND HYDROCHLOROTHIAZIDE [Concomitant]
     Active Substance: HYDROCHLOROTHIAZIDE\LISINOPRIL
     Indication: HYPERTENSION
     Dosage: 1 DF, 1X/DAY (HYDROCHLOROTHIAZIDE 20MG, LISINOPRIL 25 MG, 1X/DAY)
  10. AMLODIPINE [Concomitant]
     Active Substance: AMLODIPINE BESYLATE
     Indication: HYPERTENSION
     Dosage: 5 MG, DAILY IN THE MORNING WHEN AT A HIGH ALTITUDE
  11. CALCIUM [Concomitant]
     Active Substance: CALCIUM
     Indication: HYPERTENSION
     Dosage: 500 MG, 1X/DAY
  12. GLUCOSAMINE [Concomitant]
     Active Substance: GLUCOSAMINE
     Dosage: 1500 MG, DAILY

REACTIONS (8)
  - Pain in extremity [Recovered/Resolved]
  - Asthenia [Recovered/Resolved]
  - Dyspnoea [Recovered/Resolved]
  - Cardiac disorder [Recovered/Resolved]
  - Palpitations [Recovered/Resolved]
  - Gait disturbance [Recovered/Resolved]
  - Cardiac flutter [Recovered/Resolved]
  - Chest discomfort [Recovered/Resolved]

NARRATIVE: CASE EVENT DATE: 2014
